FAERS Safety Report 7224758-1 (Version None)
Quarter: 2011Q1

REPORT INFORMATION
  Report Type: 
  Country: None (occurrence: None)
  Receive Date: 20110104
  Receipt Date: 20101227
  Transmission Date: 20110831
  Serious: Yes (Hospitalization)
  Sender: FDA-Public Use
  Company Number: 7033180

PATIENT
  Age: 81 Year
  Sex: Female

DRUGS (5)
  1. LASILIX (FUROSEMIDE) (40 MG, TABL.ET)(FUROSEMIDE) [Concomitant]
  2. NOVOMIX (INSULIN ASPART) (SOLUTION FOR INJECTION) (INSULIN ASPART) [Concomitant]
  3. PRAVADUAL (PRAVASTATIN) (TABLET) (PRAVASTATIN, ACETYLSALICYLIC ACID) [Concomitant]
  4. TAREG (VALSARTAN) (80 MG, CAPSULE)(VALSARTAN) [Concomitant]
  5. LEVOTHYROX (LEVOTHYROXINE SODIUM) (TABLET)(LEVOTHYROXINE SODIUM) [Suspect]
     Indication: HYPOTHYROIDISM
     Dosage: 1 DF (1 DF,L IN 1 D) ORAL
     Route: 048

REACTIONS (11)
  - CARDIAC FAILURE [None]
  - DISORIENTATION [None]
  - BLOOD GLUCOSE DECREASED [None]
  - OVERDOSE [None]
  - NEPHROGENIC ANAEMIA [None]
  - IRON DEFICIENCY [None]
  - HYPERTHYROIDISM [None]
  - DECREASED APPETITE [None]
  - ASTHENIA [None]
  - BUNDLE BRANCH BLOCK RIGHT [None]
  - BLOOD PRESSURE DIASTOLIC DECREASED [None]
